FAERS Safety Report 5042121-9 (Version None)
Quarter: 2006Q2

REPORT INFORMATION
  Report Type: 
  Country: None (occurrence: None)
  Receive Date: 20060601
  Receipt Date: 20060329
  Transmission Date: 20061013
  Serious: No
  Sender: FDA-Public Use
  Company Number: 2006PV011136

PATIENT
  Age: 58 Year
  Sex: Female

DRUGS (4)
  1. BYETTA [Suspect]
     Indication: DIABETES MELLITUS NON-INSULIN-DEPENDENT
     Dosage: SEE IMAGE
     Route: 058
     Dates: start: 20060214, end: 20060313
  2. BYETTA [Suspect]
     Indication: DIABETES MELLITUS NON-INSULIN-DEPENDENT
     Dosage: SEE IMAGE
     Route: 058
     Dates: start: 20060314
  3. GLYBURIDE AND METFORMIN HCL [Concomitant]
  4. AVANDIA [Concomitant]

REACTIONS (3)
  - DRUG INEFFECTIVE [None]
  - NASOPHARYNGITIS [None]
  - WEIGHT DECREASED [None]
